FAERS Safety Report 8608646-1 (Version None)
Quarter: 2012Q3

REPORT INFORMATION
  Report Type: 
  Country: None (occurrence: None)
  Receive Date: 20120821
  Receipt Date: 20120813
  Transmission Date: 20120928
  Serious: Yes (Life-Threatening, Hospitalization, Disabling, Other)
  Sender: FDA-Public Use
  Company Number: FR-ASTRAZENECA-2012SE21167

PATIENT
  Age: 12342 Day
  Sex: Male
  Weight: 87 kg

DRUGS (10)
  1. SEROQUEL [Suspect]
     Indication: SCHIZOPHRENIA
     Dosage: DOSE PROGRESSIVELY INCREASED
     Route: 048
     Dates: start: 20120206, end: 20120305
  2. ARIXTRA [Suspect]
     Route: 065
     Dates: start: 20120101, end: 20120301
  3. ATARAX [Suspect]
     Route: 065
  4. CLOZAPINE [Suspect]
     Indication: SCHIZOPHRENIA
     Dosage: 300 MG TO 400 MG PER DAY
     Route: 048
     Dates: start: 20120112, end: 20120119
  5. CODEINE SULFATE [Suspect]
     Route: 048
     Dates: start: 20120201, end: 20120301
  6. SANDOSTATIN [Suspect]
     Route: 065
     Dates: start: 20120201, end: 20120301
  7. NEXIUM [Suspect]
     Route: 048
  8. TRANXENE [Suspect]
     Indication: AGITATION
     Route: 048
     Dates: start: 20120127, end: 20120305
  9. IMODIUM [Suspect]
     Indication: DIARRHOEA
     Route: 048
     Dates: start: 20120201, end: 20120301
  10. TRANXENE [Suspect]
     Indication: ANXIETY
     Route: 048
     Dates: start: 20120127, end: 20120305

REACTIONS (12)
  - SUICIDE ATTEMPT [None]
  - SEPTIC SHOCK [None]
  - INTESTINAL ISCHAEMIA [None]
  - HYPOMAGNESAEMIA [None]
  - DELIRIUM [None]
  - HYPOALBUMINAEMIA [None]
  - ANAEMIA [None]
  - HYPOKALAEMIA [None]
  - DISSOCIATIVE DISORDER [None]
  - COLITIS ISCHAEMIC [None]
  - INTESTINAL OBSTRUCTION [None]
  - LUNG DISORDER [None]
